FAERS Safety Report 8962673 (Version 1)
Quarter: 2012Q4

REPORT INFORMATION
  Report Type: 
  Country: US (occurrence: US)
  Receive Date: 20121214
  Receipt Date: 20121214
  Transmission Date: 20130627
  Serious: Yes (Other)
  Sender: FDA-Public Use
  Company Number: US-BAYER-2012-131211

PATIENT
  Age: 30 Year
  Sex: Female

DRUGS (14)
  1. BETASERON [Suspect]
     Dosage: 0.25 mg, QOD
     Route: 058
  2. PRILOSEC [Concomitant]
     Dosage: 20 mg, UNK
  3. ASPIRIN BUFFERED [Concomitant]
     Dosage: 325 mg, UNK
  4. VITAMIN D [Concomitant]
     Dosage: 5000 u, UNK
  5. DOXICYCLIN [Concomitant]
     Dosage: 150 mg, UNK
  6. BEE POLLEN [Concomitant]
  7. BACLOFEN [Concomitant]
     Dosage: 20 mg, UNK
  8. DEPO-PROVERA [Concomitant]
     Dosage: 150 mg/ml, UNK
     Route: 030
  9. MOTRIN [Concomitant]
     Dosage: 800 mg, UNK
  10. NORETHINDRONE [Concomitant]
     Dosage: 0.35 mg, UNK
  11. FLONASE [Concomitant]
     Route: 055
  12. CLARITIN [Concomitant]
     Dosage: 10 mg, UNK
  13. MIRALAX [Concomitant]
  14. HYDROCHLOROTHIAZIDE W/TRIAMTERENE [Concomitant]
     Dosage: 25-50mg

REACTIONS (2)
  - Fall [None]
  - Thrombosis [None]
